FAERS Safety Report 8899735 (Version 4)
Quarter: 2013Q1

REPORT INFORMATION
  Report Type: Report from Study
  Country: US (occurrence: US)
  Receive Date: 20121109
  Receipt Date: 20130111
  Transmission Date: 20140127
  Serious: Yes (Hospitalization)
  Sender: FDA-Public Use
  Company Number: US-SANOFI-AVENTIS-2012SA081239

PATIENT
  Age: 72 Year
  Sex: Male
  Weight: 72 kg

DRUGS (6)
  1. DOCETAXEL [Suspect]
     Indication: BLADDER TRANSITIONAL CELL CARCINOMA
     Route: 041
     Dates: start: 20120920, end: 20120920
  2. INVESTIGATIONAL DRUG [Suspect]
     Indication: BLADDER TRANSITIONAL CELL CARCINOMA
     Route: 042
     Dates: start: 20120920, end: 20120920
  3. METFORMIN [Concomitant]
     Dates: start: 20120904, end: 20121015
  4. GLIPIZIDE [Concomitant]
     Dates: start: 20120902, end: 20121015
  5. WARFARIN [Concomitant]
     Dates: start: 2007, end: 20121015
  6. BACTRIM [Concomitant]
     Dates: start: 20121010, end: 20121015

REACTIONS (1)
  - Hypoglycaemia [Recovered/Resolved]
